FAERS Safety Report 7025452-2 (Version None)
Quarter: 2010Q4

REPORT INFORMATION
  Report Type: 
  Country: None (occurrence: None)
  Receive Date: 20101001
  Receipt Date: 20100929
  Transmission Date: 20110411
  Serious: Yes (Death, Hospitalization, Other)
  Sender: FDA-Public Use
  Company Number: PHFR2010GB01205

PATIENT
  Sex: Male

DRUGS (7)
  1. CLOZARIL [Suspect]
     Indication: SCHIZOPHRENIA
     Dosage: 75 MG, UNK
     Route: 048
     Dates: start: 20000207
  2. SIMVASTATIN [Concomitant]
     Indication: HYPERLIPIDAEMIA
     Dosage: 40 MG
     Route: 048
  3. BISOPROLOL [Concomitant]
     Indication: HYPERTENSION
     Dosage: 1.25 MG
     Route: 048
  4. OMEPRAZOLE [Concomitant]
     Dosage: 40 MG
     Route: 048
  5. FUROSEMIDE [Concomitant]
     Dosage: 40 MG
     Route: 048
  6. GLICLAZIDE [Concomitant]
     Indication: DIABETES MELLITUS
  7. METFORMIN HCL [Concomitant]
     Indication: DIABETES MELLITUS

REACTIONS (12)
  - DIABETES MELLITUS [None]
  - DRUG DOSE OMISSION [None]
  - GASTROINTESTINAL TUBE INSERTION [None]
  - GENERAL PHYSICAL HEALTH DETERIORATION [None]
  - HYPERCALCAEMIA [None]
  - MALAISE [None]
  - MASS [None]
  - METASTASES TO BONE [None]
  - METASTASES TO SPINE [None]
  - METASTATIC NEOPLASM [None]
  - PERITONEAL DISORDER [None]
  - RENAL FAILURE [None]
